FAERS Safety Report 20759764 (Version 1)
Quarter: 2022Q2

REPORT INFORMATION
  Report Type: Spontaneous
  Country: US (occurrence: US)
  Receive Date: 20220427
  Receipt Date: 20220427
  Transmission Date: 20220721
  Serious: No
  Sender: FDA-Public Use
  Company Number: US-PFIZER INC-202101513921

PATIENT
  Age: 77 Year
  Sex: Male

DRUGS (3)
  1. GABAPENTIN [Suspect]
     Active Substance: GABAPENTIN
     Indication: Pain
     Dosage: 100 MG, 2X/DAY (100 MG AT NIGHT AND 100 MG IN MORNING)
  2. GABAPENTIN [Suspect]
     Active Substance: GABAPENTIN
     Dosage: 100 MG (UP TO 4 A DAY)
  3. GABAPENTIN [Suspect]
     Active Substance: GABAPENTIN
     Dosage: 200 MG

REACTIONS (1)
  - Somnolence [Unknown]
